FAERS Safety Report 24587233 (Version 1)
Quarter: 2024Q4

REPORT INFORMATION
  Report Type: Other
  Country: GB (occurrence: GB)
  Receive Date: 20241107
  Receipt Date: 20241107
  Transmission Date: 20250115
  Serious: Yes (Other)
  Sender: ZYDUS PHARM
  Company Number: None

PATIENT

DRUGS (3)
  1. APIXABAN [Suspect]
     Active Substance: APIXABAN
     Indication: Adverse drug reaction
     Dosage: 5 MILLIGRAM TWICE A DAY
     Route: 065
     Dates: start: 20240906, end: 20241024
  2. RAMIPRIL [Concomitant]
     Active Substance: RAMIPRIL
     Indication: Product used for unknown indication
     Dosage: UNK
     Route: 065
  3. NARDIL [Concomitant]
     Active Substance: PHENELZINE SULFATE
     Indication: Depression
     Dosage: UNK
     Route: 065

REACTIONS (4)
  - Hypertension [Recovering/Resolving]
  - Headache [Recovering/Resolving]
  - Nausea [Recovering/Resolving]
  - Diarrhoea [Recovering/Resolving]

NARRATIVE: CASE EVENT DATE: 20240901
